FAERS Safety Report 4452830-8 (Version None)
Quarter: 2004Q3

REPORT INFORMATION
  Report Type: 
  Country: None (occurrence: None)
  Receive Date: 20040917
  Receipt Date: 20040902
  Transmission Date: 20050211
  Serious: Yes (Hospitalization, Other)
  Sender: FDA-Public Use
  Company Number: 2004057138

PATIENT
  Age: 51 Year
  Sex: Male
  Weight: 63.5036 kg

DRUGS (34)
  1. NEURONTIN [Suspect]
     Indication: PAIN
  2. ARICEPT [Suspect]
     Indication: PAIN
  3. OXYCODONE HCL [Suspect]
     Indication: PAIN
     Dosage: 40 MG (20 MG , 2 IN 1 D)
     Dates: start: 20030806, end: 20030905
  4. DARBEPOETIN ALFA (DARBEPOETIN ALFA) [Suspect]
     Indication: ANAEMIA
     Dosage: (200 MCG), SUBCUTANEOUS
     Route: 058
     Dates: start: 20030821
  5. DRONABINOL (DRONABINOL) [Suspect]
     Indication: PAIN
  6. GRANISETRON (GRANISETRON) [Suspect]
     Indication: ILL-DEFINED DISORDER
     Dosage: 1 MG (1 MG, 1 IN 1 D)
     Dates: start: 20030828, end: 20030828
  7. ZOLPIDEM TARTRATE [Concomitant]
  8. SERTRALINE HCL [Concomitant]
  9. GLIPIZIDE [Concomitant]
  10. NIFEDIPINE [Concomitant]
  11. MAGENESIUM (MAGNESIUM) [Concomitant]
  12. LEVOFLOXACIN [Concomitant]
  13. PENTAMIDINE (PENTAMIDINE) [Concomitant]
  14. PERI-COLACE [Concomitant]
  15. BISACODYL (BISACODYL) [Concomitant]
  16. ASPIRIN [Concomitant]
  17. FUROSEMIDE [Concomitant]
  18. SARGRAMOSTIM (SARGRAMOSTIM) [Concomitant]
  19. DEXAMETHASONE [Concomitant]
  20. GRANISETRON (GRANISETRON) [Concomitant]
  21. MORPHINE SULFATE [Concomitant]
  22. CHLORPROMAZINE [Concomitant]
  23. TACROLIMUS (TACROLIMUS) [Concomitant]
  24. PANTOPRAZOLE (PANTOPRAZOLE) [Concomitant]
  25. DOXORUBICIN (DOXORUBICIN) [Concomitant]
  26. CISPLATIN [Concomitant]
  27. DEFLAZACORT (DEFLAZACORT) [Concomitant]
  28. SENNA FRUIT (SENA FRUIT) [Concomitant]
  29. PROPRANOLOL HYDROCHLORIDE (PROPRANOLOL HYDROCHLORIDE) [Concomitant]
  30. MULTIVITAMINS (ASCORBIC ACID, ERGOCLACIFEROL, FOLIC ACID, NICOTINAMIDE [Concomitant]
  31. INSULIN [Concomitant]
  32. SPIRONOLACTONE [Concomitant]
  33. MEGACE [Concomitant]
  34. REPAGLINIDE (REPAGLINIDE) [Concomitant]

REACTIONS (12)
  - ASTHENIA [None]
  - CONFUSIONAL STATE [None]
  - CONTUSION [None]
  - CONVULSION [None]
  - FALL [None]
  - FATIGUE [None]
  - MENTAL STATUS CHANGES [None]
  - NAUSEA [None]
  - PANCYTOPENIA [None]
  - SKULL X-RAY ABNORMAL [None]
  - SWELLING [None]
  - VOMITING [None]
